FAERS Safety Report 9264065 (Version 1)
Quarter: 2013Q2

REPORT INFORMATION
  Report Type: Spontaneous
  Country: BR (occurrence: BR)
  Receive Date: 20130430
  Receipt Date: 20130430
  Transmission Date: 20140414
  Serious: Yes (Other)
  Sender: FDA-Public Use
  Company Number: BR-ELI_LILLY_AND_COMPANY-BR201304005612

PATIENT
  Age: 18 Year
  Sex: Female
  Weight: 46 kg

DRUGS (1)
  1. ZYPREXA [Suspect]
     Indication: PSYCHOTIC DISORDER
     Dosage: 10 MG, UNKNOWN
     Dates: start: 20130411, end: 20130411

REACTIONS (5)
  - Syncope [Not Recovered/Not Resolved]
  - Tachycardia [Not Recovered/Not Resolved]
  - Oedema [Not Recovered/Not Resolved]
  - Lip swelling [Not Recovered/Not Resolved]
  - Malaise [Not Recovered/Not Resolved]
